FAERS Safety Report 7999045 (Version 5)
Quarter: 2013Q1

REPORT INFORMATION
  Report Type: Report from Study
  Country: US (occurrence: US)
  Receive Date: 20110621
  Receipt Date: 20130222
  Transmission Date: 20140127
  Serious: Yes (Death, Life-Threatening, Hospitalization, Disabling)
  Sender: FDA-Public Use
  Company Number: US-JNJFOC-20110604364

PATIENT
  Age: 84 Year
  Sex: Male
  Weight: 83.2 kg

DRUGS (20)
  1. GOLIMUMAB [Suspect]
     Indication: RHEUMATOID ARTHRITIS
     Route: 058
     Dates: start: 20110510
  2. GOLIMUMAB [Suspect]
     Indication: RHEUMATOID ARTHRITIS
     Route: 058
     Dates: start: 20101228
  3. METHOTREXATE [Concomitant]
     Indication: RHEUMATOID ARTHRITIS
     Route: 058
     Dates: start: 20000612
  4. COLACE [Concomitant]
     Route: 048
     Dates: start: 20110418
  5. PERCOCET [Concomitant]
     Route: 048
     Dates: start: 20110418
  6. RANITIDINE [Concomitant]
     Indication: GASTROOESOPHAGEAL REFLUX DISEASE
     Route: 048
  7. VITAMIN C [Concomitant]
     Indication: MEDICAL DIET
     Route: 048
  8. WARFARIN [Concomitant]
     Indication: ATRIAL FIBRILLATION
     Route: 048
  9. WARFARIN [Concomitant]
     Indication: ATRIAL FIBRILLATION
     Route: 048
  10. NORVASC [Concomitant]
     Indication: HYPERTENSION
     Route: 048
     Dates: start: 20110418
  11. NORVASC [Concomitant]
     Indication: HYPERTENSION
     Route: 048
     Dates: start: 20110305
  12. ATENOLOL [Concomitant]
     Indication: HYPERTENSION
     Route: 048
  13. DIOVAN [Concomitant]
     Indication: HYPERTENSION
     Route: 048
  14. FOLIC ACID [Concomitant]
     Indication: MEDICAL DIET
     Route: 048
     Dates: start: 20000612
  15. GLUCOSAMINE [Concomitant]
     Indication: MEDICAL DIET
     Route: 048
  16. OS.CAL [Concomitant]
     Indication: MEDICAL DIET
     Route: 048
  17. ENBREL [Concomitant]
     Indication: RHEUMATOID ARTHRITIS
     Route: 058
     Dates: start: 20100619
  18. SULFASALAZINE [Concomitant]
     Indication: RHEUMATOID ARTHRITIS
     Route: 058
  19. JALYN [Concomitant]
     Indication: BENIGN PROSTATIC HYPERPLASIA
     Route: 058
  20. OTHER DRUGS USED IN BENIGN PROSTATIC HYPERTR. [Concomitant]
     Indication: MEDICAL DIET
     Route: 058

REACTIONS (1)
  - Cerebral haemorrhage [Fatal]
